FAERS Safety Report 23754747 (Version 1)
Quarter: 2024Q2

REPORT INFORMATION
  Report Type: Spontaneous
  Country: US (occurrence: US)
  Receive Date: 20240418
  Receipt Date: 20240418
  Transmission Date: 20240716
  Serious: No
  Sender: FDA-Public Use
  Company Number: US-TEVA-VS-3177000

PATIENT
  Age: 65 Year
  Sex: Male

DRUGS (1)
  1. BUPRENORPHINE [Suspect]
     Active Substance: BUPRENORPHINE
     Indication: Pain
     Dosage: 10 MCG/HR
     Route: 065

REACTIONS (5)
  - Hypersensitivity [Unknown]
  - Wrong technique in product usage process [Unknown]
  - Scratch [Unknown]
  - Application site scar [Unknown]
  - Product adhesion issue [Unknown]
